FAERS Safety Report 17860629 (Version 1)
Quarter: 2020Q2

REPORT INFORMATION
  Report Type: Spontaneous
  Country: US (occurrence: US)
  Receive Date: 20200604
  Receipt Date: 20200604
  Transmission Date: 20200714
  Serious: No
  Sender: FDA-Public Use
  Company Number: US-SA-2020SA141531

PATIENT

DRUGS (1)
  1. DUPIXENT [Suspect]
     Active Substance: DUPILUMAB
     Dosage: UNK, UNK UNK

REACTIONS (5)
  - Wrong technique in product usage process [Unknown]
  - Product dose omission [Unknown]
  - Product storage error [Unknown]
  - Gait inability [Unknown]
  - Urticaria [Unknown]

NARRATIVE: CASE EVENT DATE: 20200528
